FAERS Safety Report 8209386-3 (Version None)
Quarter: 2012Q1

REPORT INFORMATION
  Report Type: 
  Country: None (occurrence: None)
  Receive Date: 20120314
  Receipt Date: 20120312
  Transmission Date: 20120608
  Serious: No
  Sender: FDA-Public Use
  Company Number: US-BAYER-2012-024779

PATIENT
  Age: 76 Year
  Sex: Female

DRUGS (1)
  1. AVELOX [Suspect]
     Dosage: UNK

REACTIONS (1)
  - NO ADVERSE EVENT [None]
